FAERS Safety Report 8229531-3 (Version None)
Quarter: 2012Q1

REPORT INFORMATION
  Report Type: 
  Country: None (occurrence: None)
  Receive Date: 20120322
  Receipt Date: 20120306
  Transmission Date: 20120608
  Serious: Yes (Other)
  Sender: FDA-Public Use
  Company Number: CHPA2012US004613

PATIENT
  Age: 43 Year
  Sex: Male

DRUGS (1)
  1. GAS-X EXTSTR CHEWABLE TABS CHERRY CREME [Suspect]
     Indication: FLATULENCE
     Dosage: 2DF, ONCE/SINGLE
     Route: 048
     Dates: start: 20120303, end: 20120303

REACTIONS (1)
  - URTICARIA [None]
